FAERS Safety Report 22178018 (Version 3)
Quarter: 2023Q2

REPORT INFORMATION
  Report Type: Spontaneous
  Country: US (occurrence: US)
  Receive Date: 20230405
  Receipt Date: 20230613
  Transmission Date: 20230722
  Serious: Yes (Hospitalization, Other)
  Sender: FDA-Public Use
  Company Number: US-Calliditas-2023CAL00295

PATIENT
  Age: 37 Year
  Sex: Male

DRUGS (2)
  1. TARPEYO [Suspect]
     Active Substance: BUDESONIDE
     Indication: IgA nephropathy
     Dosage: 16 MG (4 MG CAPULES) ONCE DAILY
     Route: 048
     Dates: start: 20230308
  2. HYDRALAZINE [Concomitant]
     Active Substance: HYDRALAZINE HYDROCHLORIDE

REACTIONS (10)
  - Chest pain [Recovered/Resolved]
  - Arrhythmia [Recovered/Resolved]
  - Hypertension [Recovered/Resolved]
  - Insomnia [Unknown]
  - Gastrointestinal disorder [Unknown]
  - Influenza [Recovered/Resolved]
  - Renal pain [Unknown]
  - Blood urine present [Unknown]
  - Proteinuria [Unknown]
  - Gallbladder operation [Unknown]

NARRATIVE: CASE EVENT DATE: 20230301
